FAERS Safety Report 5884958-X (Version None)
Quarter: 2008Q3

REPORT INFORMATION
  Report Type: 
  Country: None (occurrence: None)
  Receive Date: 20080916
  Receipt Date: 20080910
  Transmission Date: 20090109
  Serious: Yes (Hospitalization)
  Sender: FDA-Public Use
  Company Number: B0522691A

PATIENT
  Age: 78 Year
  Sex: Female

DRUGS (6)
  1. AUGMENTIN '125' [Suspect]
     Route: 048
     Dates: start: 20080401, end: 20080411
  2. CLARITHROMYCIN [Suspect]
     Route: 048
     Dates: start: 20080411, end: 20080101
  3. PREVISCAN [Concomitant]
     Route: 048
  4. CORDARONE [Concomitant]
     Route: 048
  5. COZAAR [Concomitant]
     Indication: DRUG USE FOR UNKNOWN INDICATION
     Route: 048
  6. SEROPLEX [Concomitant]
     Indication: DRUG USE FOR UNKNOWN INDICATION
     Route: 048

REACTIONS (24)
  - ALPHA 1 GLOBULIN INCREASED [None]
  - ALPHA 2 GLOBULIN INCREASED [None]
  - ATRIAL FIBRILLATION [None]
  - BLOOD CREATININE INCREASED [None]
  - BLOOD SODIUM INCREASED [None]
  - CHROMATURIA [None]
  - COUGH [None]
  - DRUG HYPERSENSITIVITY [None]
  - ESCHERICHIA SEPSIS [None]
  - FALL [None]
  - FLANK PAIN [None]
  - FLUSHING [None]
  - HAEMOGLOBIN DECREASED [None]
  - HEART SOUNDS ABNORMAL [None]
  - HYPOALBUMINAEMIA [None]
  - HYPONATRAEMIA [None]
  - LEUKOCYTOSIS [None]
  - MITRAL VALVE INCOMPETENCE [None]
  - NEPHROPATHY [None]
  - NEUTROPHIL COUNT INCREASED [None]
  - PROTEINURIA [None]
  - RALES [None]
  - RENAL FAILURE ACUTE [None]
  - THROMBOCYTOPENIA [None]
